FAERS Safety Report 4510829-7 (Version None)
Quarter: 2004Q4

REPORT INFORMATION
  Report Type: 
  Country: None (occurrence: None)
  Receive Date: 20041124
  Receipt Date: 20040226
  Transmission Date: 20050328
  Serious: Yes (Hospitalization)
  Sender: FDA-Public Use
  Company Number: US-MERCK-0402USA01953

PATIENT
  Age: 52 Year
  Sex: Male
  Weight: 93 kg

DRUGS (3)
  1. VIOXX [Suspect]
     Indication: OSTEOARTHRITIS
     Route: 048
     Dates: start: 20000301, end: 20000401
  2. VIOXX [Suspect]
     Route: 048
     Dates: start: 20000401, end: 20000601
  3. VIOXX [Suspect]
     Route: 048
     Dates: start: 20000601, end: 20020126

REACTIONS (15)
  - ACUTE MYOCARDIAL INFARCTION [None]
  - CHEST PAIN [None]
  - CORONARY ARTERY DISEASE [None]
  - EPICONDYLITIS [None]
  - GASTROOESOPHAGEAL REFLUX DISEASE [None]
  - HERPES SIMPLEX [None]
  - HYPERCHOLESTEROLAEMIA [None]
  - HYPERTENSION [None]
  - INTERVERTEBRAL DISC DEGENERATION [None]
  - MUSCLE INJURY [None]
  - PERIARTHRITIS [None]
  - SEBORRHOEIC KERATOSIS [None]
  - TELANGIECTASIA [None]
  - TENOSYNOVITIS [None]
  - VENTRICULAR TACHYCARDIA [None]
